FAERS Safety Report 4321197-8 (Version None)
Quarter: 2004Q1

REPORT INFORMATION
  Report Type: 
  Country: None (occurrence: None)
  Receive Date: 20040322
  Receipt Date: 20040322
  Transmission Date: 20041129
  Serious: Yes (Disabling)
  Sender: FDA-Public Use
  Company Number: None

PATIENT
  Sex: Female
  Weight: 71.2147 kg

DRUGS (1)
  1. LAMISIL [Suspect]
     Indication: ONYCHOMYCOSIS
     Dosage: 1 A DAY ORAL
     Route: 048
     Dates: start: 20040208, end: 20040309

REACTIONS (4)
  - AGEUSIA [None]
  - DEPRESSION [None]
  - DYSGEUSIA [None]
  - SALIVARY HYPERSECRETION [None]
